FAERS Safety Report 8020628-X (Version None)
Quarter: 2012Q1

REPORT INFORMATION
  Report Type: 
  Country: None (occurrence: None)
  Receive Date: 20120103
  Receipt Date: 20120102
  Transmission Date: 20120608
  Serious: Yes (Other)
  Sender: FDA-Public Use
  Company Number: DE-AMGEN-DEUSP2011066774

PATIENT
  Age: 7 Year
  Sex: Male
  Weight: 30 kg

DRUGS (2)
  1. NPLATE [Suspect]
     Indication: WISKOTT-ALDRICH SYNDROME
     Dosage: 8 MUG/KG, QWK
     Route: 058
     Dates: start: 20101201
  2. IRON [Concomitant]
     Indication: PRODUCT USED FOR UNKNOWN INDICATION
     Dosage: UNK UNK, PRN

REACTIONS (1)
  - THERAPEUTIC RESPONSE DECREASED [None]
